FAERS Safety Report 22214689 (Version 1)
Quarter: 2023Q2

REPORT INFORMATION
  Report Type: Spontaneous
  Country: US (occurrence: US)
  Receive Date: 20230415
  Receipt Date: 20230415
  Transmission Date: 20230721
  Serious: No
  Sender: FDA-Public Use
  Company Number: US-JNJFOC-20190637864

PATIENT
  Age: 53 Year
  Sex: Female
  Weight: 49.940 kg

DRUGS (1)
  1. WOMENS ROGAINE UNSCENTED [Suspect]
     Active Substance: MINOXIDIL
     Indication: Alopecia
     Dosage: HALF CAP
     Route: 061
     Dates: start: 20190301

REACTIONS (1)
  - Drug ineffective [Unknown]
